FAERS Safety Report 5954679-3 (Version None)
Quarter: 2008Q4

REPORT INFORMATION
  Report Type: 
  Country: None (occurrence: None)
  Receive Date: 20081117
  Receipt Date: 20081105
  Transmission Date: 20090506
  Serious: Yes (Other)
  Sender: FDA-Public Use
  Company Number: PHBS2008US06250

PATIENT
  Age: 60 Year
  Sex: Male

DRUGS (1)
  1. BACLOFEN [Suspect]
     Indication: MUSCLE SPASTICITY
     Route: 037

REACTIONS (13)
  - ANTINUCLEAR ANTIBODY POSITIVE [None]
  - CATHETER REMOVAL [None]
  - CSF GLUCOSE DECREASED [None]
  - DRUG INEFFECTIVE [None]
  - ERYTHEMA [None]
  - HEADACHE [None]
  - MALAISE [None]
  - MENINGITIS [None]
  - MUSCULAR WEAKNESS [None]
  - MYCOBACTERIUM FORTUITUM INFECTION [None]
  - PLEOCYTOSIS [None]
  - PYREXIA [None]
  - WOUND INFECTION [None]
